FAERS Safety Report 6517904-6 (Version None)
Quarter: 2009Q4

REPORT INFORMATION
  Report Type: 
  Country: None (occurrence: None)
  Receive Date: 20091223
  Receipt Date: 20091223
  Transmission Date: 20100525
  Serious: Yes (Other)
  Sender: FDA-Public Use
  Company Number: None

PATIENT
  Age: 50 Year
  Sex: Female
  Weight: 72.5755 kg

DRUGS (1)
  1. LAMOTRIGINE [Suspect]
     Dosage: TAKE 1 TABLET TWICE A DAY
     Dates: start: 20090630, end: 20090707

REACTIONS (3)
  - HOT FLUSH [None]
  - NIGHT SWEATS [None]
  - PRODUCT SUBSTITUTION ISSUE [None]
